FAERS Safety Report 20530554 (Version 1)
Quarter: 2022Q1

REPORT INFORMATION
  Report Type: Report from Study
  Country: CH (occurrence: CH)
  Receive Date: 20220301
  Receipt Date: 20220301
  Transmission Date: 20220423
  Serious: Yes (Hospitalization)
  Sender: FDA-Public Use
  Company Number: CH-ABBVIE-22K-151-4232163-00

PATIENT
  Age: 79 Year
  Sex: Male

DRUGS (3)
  1. CARBIDOPA\LEVODOPA [Suspect]
     Active Substance: CARBIDOPA\LEVODOPA
     Indication: Parkinson^s disease
     Route: 050
     Dates: start: 20141103
  2. CARBIDOPA\LEVODOPA [Suspect]
     Active Substance: CARBIDOPA\LEVODOPA
     Dosage: MD: 5 ML, CRD: 2 ML/H, CRN: 0.5 ML/H, ED: 1.5 ML?24H THERAPY
     Route: 050
     Dates: start: 20210701, end: 20210817
  3. CARBIDOPA\LEVODOPA [Suspect]
     Active Substance: CARBIDOPA\LEVODOPA
     Dosage: MD: 5 ML, CRD: 2 ML/H, CRN: 0.5 ML/H, ED: 1.5 ML?24H THERAPY
     Route: 050
     Dates: start: 20210817

REACTIONS (14)
  - Wound haemorrhage [Recovered/Resolved]
  - Stoma site infection [Not Recovered/Not Resolved]
  - Stoma site discharge [Recovering/Resolving]
  - Stoma site erythema [Recovering/Resolving]
  - Stoma site haemorrhage [Recovered/Resolved]
  - Stoma site pain [Not Recovered/Not Resolved]
  - Stoma site hypergranulation [Unknown]
  - Akinesia [Unknown]
  - Device use error [Recovered/Resolved]
  - Aggression [Unknown]
  - Fungal skin infection [Unknown]
  - Device placement issue [Not Recovered/Not Resolved]
  - Head injury [Recovered/Resolved]
  - Movement disorder [Recovered/Resolved]

NARRATIVE: CASE EVENT DATE: 20220104
